FAERS Safety Report 23499984 (Version 2)
Quarter: 2024Q4

REPORT INFORMATION
  Report Type: Report from Study
  Country: CA (occurrence: CA)
  Receive Date: 20240208
  Receipt Date: 20241114
  Transmission Date: 20250115
  Serious: Yes (Other)
  Sender: JOHNSON AND JOHNSON
  Company Number: CA-JNJFOC-20240204884

PATIENT
  Age: 14 Year
  Sex: Female
  Weight: 46 kg

DRUGS (3)
  1. REMICADE [Suspect]
     Active Substance: INFLIXIMAB
     Indication: Crohn^s disease
     Route: 041
     Dates: start: 20200612
  2. REMICADE [Suspect]
     Active Substance: INFLIXIMAB
     Route: 041
  3. PENTASA [Concomitant]
     Active Substance: MESALAMINE

REACTIONS (3)
  - Mononucleosis heterophile test positive [Not Recovered/Not Resolved]
  - Viral infection [Unknown]
  - Gastrointestinal disorder [Unknown]

NARRATIVE: CASE EVENT DATE: 20240130
